FAERS Safety Report 17901638 (Version 1)
Quarter: 2020Q2

REPORT INFORMATION
  Report Type: Spontaneous
  Country: DE (occurrence: DE)
  Receive Date: 20200616
  Receipt Date: 20200616
  Transmission Date: 20200714
  Serious: Yes (Hospitalization)
  Sender: FDA-Public Use
  Company Number: DE-ASTRAZENECA-2020SE73828

PATIENT
  Age: 43 Year
  Sex: Male

DRUGS (5)
  1. PANTOPRAZOL [Concomitant]
     Active Substance: PANTOPRAZOLE SODIUM
     Dosage: 20 MG, 1-0-0-0
     Route: 065
  2. XEPLION [Suspect]
     Active Substance: PALIPERIDONE PALMITATE
     Route: 030
  3. PIPAMPERON [Suspect]
     Active Substance: PIPAMPERONE HYDROCHLORIDE
     Dosage: 40.0MG AS REQUIRED
     Route: 065
  4. RISPERIDON [Suspect]
     Active Substance: RISPERIDONE
     Dosage: 1 MG, 2-0-1-1
     Route: 065
  5. QUETIAPIN [Suspect]
     Active Substance: QUETIAPINE
     Dosage: 100.0MG AS REQUIRED
     Route: 065

REACTIONS (4)
  - Electrolyte imbalance [Unknown]
  - General physical health deterioration [Unknown]
  - Pain [Unknown]
  - Fatigue [Unknown]
